FAERS Safety Report 14385549 (Version 1)
Quarter: 2018Q1

REPORT INFORMATION
  Report Type: Spontaneous
  Country: US (occurrence: US)
  Receive Date: 20180115
  Receipt Date: 20180115
  Transmission Date: 20180509
  Serious: Yes (Other)
  Sender: FDA-Public Use
  Company Number: US-SA-2016SA234102

PATIENT
  Age: 64 Year
  Sex: Female
  Weight: 79 kg

DRUGS (9)
  1. PALONOSETRON. [Concomitant]
     Active Substance: PALONOSETRON HYDROCHLORIDE
  2. HEPARIN [Concomitant]
     Active Substance: HEPARIN SODIUM
  3. HERCEPTIN [Concomitant]
     Active Substance: TRASTUZUMAB
  4. EMEND [Concomitant]
     Active Substance: APREPITANT
  5. ALOXI [Concomitant]
     Active Substance: PALONOSETRON HYDROCHLORIDE
  6. TAXOTERE [Suspect]
     Active Substance: DOCETAXEL
     Indication: BREAST CANCER FEMALE
     Dosage: DOSE 99-132
     Route: 051
     Dates: start: 20130214, end: 20130214
  7. CARBOPLATIN. [Concomitant]
     Active Substance: CARBOPLATIN
  8. TAXOTERE [Suspect]
     Active Substance: DOCETAXEL
     Indication: BREAST CANCER FEMALE
     Route: 051
     Dates: start: 20130606, end: 20130606
  9. NEULASTA [Concomitant]
     Active Substance: PEGFILGRASTIM

REACTIONS (6)
  - Psychological trauma [Unknown]
  - Pain [Unknown]
  - Emotional distress [Unknown]
  - Impaired quality of life [Unknown]
  - Anxiety [Unknown]
  - Alopecia [Not Recovered/Not Resolved]

NARRATIVE: CASE EVENT DATE: 2013
